FAERS Safety Report 5456764-1 (Version None)
Quarter: 2007Q3

REPORT INFORMATION
  Report Type: 
  Country: None (occurrence: None)
  Receive Date: 20070918
  Receipt Date: 20070330
  Transmission Date: 20080115
  Serious: Yes (Other)
  Sender: FDA-Public Use
  Company Number: US-ASTRAZENECA-2006UW25968

PATIENT
  Age: 480 Month
  Sex: Female
  Weight: 128.6 kg

DRUGS (7)
  1. SEROQUEL [Suspect]
     Indication: SCHIZOPHRENIA
     Route: 048
     Dates: start: 19930101, end: 20030901
  2. SEROQUEL [Suspect]
     Indication: BIPOLAR DISORDER
     Route: 048
     Dates: start: 19930101, end: 20030901
  3. SEROQUEL [Suspect]
     Indication: DEPRESSION
     Route: 048
     Dates: start: 19930101, end: 20030901
  4. ABILIFY [Concomitant]
  5. GEODON [Concomitant]
  6. AMBIEN [Concomitant]
     Dates: start: 20040101, end: 20061101
  7. NEURONTIN [Concomitant]
     Dates: start: 20040101, end: 20061101

REACTIONS (2)
  - DIABETES MELLITUS [None]
  - PANCREATITIS [None]
